FAERS Safety Report 25721142 (Version 1)
Quarter: 2025Q3

REPORT INFORMATION
  Report Type: Spontaneous
  Country: CN (occurrence: CN)
  Receive Date: 20250825
  Receipt Date: 20250825
  Transmission Date: 20251020
  Serious: Yes (Other)
  Sender: BAXTER
  Company Number: None

PATIENT
  Sex: Female
  Weight: 58 kg

DRUGS (7)
  1. CYCLOPHOSPHAMIDE [Suspect]
     Active Substance: CYCLOPHOSPHAMIDE
     Indication: Hormone receptor positive breast cancer
     Dosage: 910 MG, QD
     Route: 042
     Dates: start: 20250407, end: 20250407
  2. CYCLOPHOSPHAMIDE [Suspect]
     Active Substance: CYCLOPHOSPHAMIDE
     Indication: HER2 low breast cancer
  3. SODIUM CHLORIDE [Suspect]
     Active Substance: SODIUM CHLORIDE
     Dosage: 50 ML, QD (WITH ENDOXAN)
     Route: 042
     Dates: start: 20250807, end: 20250807
  4. SODIUM CHLORIDE [Suspect]
     Active Substance: SODIUM CHLORIDE
     Dosage: 100 ML, QD (WITH PHARMORUBICIN)
     Route: 041
     Dates: start: 20250807, end: 20250807
  5. EPIRUBICIN [Suspect]
     Active Substance: EPIRUBICIN
     Indication: HER2 low breast cancer
     Dosage: 124 MG, QD
     Route: 041
     Dates: start: 20250407, end: 20250407
  6. EPIRUBICIN [Suspect]
     Active Substance: EPIRUBICIN
     Indication: Hormone receptor positive breast cancer
  7. Telpegfilgrastim [Concomitant]
     Route: 058
     Dates: start: 202504

REACTIONS (2)
  - Neutrophil count decreased [Recovering/Resolving]
  - White blood cell count decreased [Recovering/Resolving]

NARRATIVE: CASE EVENT DATE: 20250417
